FAERS Safety Report 18202564 (Version 2)
Quarter: 2020Q3

REPORT INFORMATION
  Report Type: Report from Study
  Country: PE (occurrence: PE)
  Receive Date: 20200827
  Receipt Date: 20200916
  Transmission Date: 20201103
  Serious: Yes (Death, Other)
  Sender: FDA-Public Use
  Company Number: PE-009507513-2008PER012540

PATIENT
  Age: 88 Year
  Sex: Male

DRUGS (2)
  1. JANUVIA [Suspect]
     Active Substance: SITAGLIPTIN PHOSPHATE
     Indication: DIABETES MELLITUS
     Dosage: A HALF TABLET DAILY
     Route: 048
     Dates: start: 2017
  2. CEBROCAL [Concomitant]
     Indication: CEREBROVASCULAR ACCIDENT
     Dosage: UNK, QD
     Route: 048

REACTIONS (5)
  - Renal failure [Unknown]
  - Cerebrovascular accident [Unknown]
  - Cardiac arrest [Fatal]
  - Wrong technique in product usage process [Unknown]
  - Hypertension [Unknown]

NARRATIVE: CASE EVENT DATE: 2017
